FAERS Safety Report 5272082-9 (Version None)
Quarter: 2007Q1

REPORT INFORMATION
  Report Type: 
  Country: None (occurrence: None)
  Receive Date: 20070322
  Receipt Date: 20070319
  Transmission Date: 20070707
  Serious: Yes (Other)
  Sender: FDA-Public Use
  Company Number: HQWYE089314AUG03

PATIENT
  Sex: Female
  Weight: 65.83 kg

DRUGS (15)
  1. PREMPRO [Suspect]
     Indication: HORMONE REPLACEMENT THERAPY
     Dosage: UNKNOWN; DAILY
     Route: 048
     Dates: start: 19951101, end: 20011101
  2. PREMPRO [Suspect]
     Indication: MENOPAUSAL SYMPTOMS
  3. HYDROCHLOROTHIAZIDE [Concomitant]
     Indication: HYPERTENSION
  4. DICLOFENAC SODIUM [Concomitant]
  5. ATENOLOL [Concomitant]
  6. LIPITOR [Concomitant]
  7. PREMARIN [Suspect]
  8. ASTELIN [Concomitant]
  9. ATROVENT [Concomitant]
     Dosage: UNKNOWN
     Route: 045
  10. FOLIC ACID [Concomitant]
     Dosage: 400 MEGAIU EVERY 1 DAY
  11. ECOTRIN [Concomitant]
  12. ASCORBIC ACID [Concomitant]
  13. POTASSIUM ACETATE [Concomitant]
  14. ENALAPRIL MALEATE [Concomitant]
     Indication: HYPERTENSION
  15. FOSAMAX [Concomitant]
     Dosage: 10 MG EVERY

REACTIONS (1)
  - BREAST CANCER METASTATIC [None]
